FAERS Safety Report 18979895 (Version 1)
Quarter: 2021Q1

REPORT INFORMATION
  Report Type: Spontaneous
  Country: US (occurrence: US)
  Receive Date: 20210305
  Receipt Date: 20210305
  Transmission Date: 20210420
  Serious: Yes (Death, Life-Threatening, Hospitalization)
  Sender: FDA-Public Use
  Company Number: None

PATIENT
  Age: 68 Year
  Sex: Female
  Weight: 77.5 kg

DRUGS (13)
  1. ATORVASTATIN [Suspect]
     Active Substance: ATORVASTATIN
     Indication: HYPERLIPIDAEMIA
     Route: 048
     Dates: start: 20120502, end: 20201128
  2. INSULIN GLARGINE 45 UNITS DAILY [Concomitant]
  3. APIXABAN 2.5 MG BID [Concomitant]
     Dates: start: 20170629, end: 20201126
  4. LACTULOSE 30 ML TID [Concomitant]
  5. MIDODRINE 10 MG TID [Concomitant]
  6. METOPROLOL 25 MG BID [Concomitant]
  7. SPIRONOLACTONE 100 MG DAILY [Concomitant]
  8. FUROSEMIDE 20 MG IV BID [Concomitant]
  9. PANTOPRAZOLE 40 MG BID [Concomitant]
  10. METHYLPHENIDATE 5 MG QAM, 10 MG DAILY AT LUNCH [Concomitant]
  11. RIFAXIMIN 550 MG BID [Concomitant]
  12. CIPROFLOXACIN 250 MG QD [Concomitant]
     Dates: end: 20201123
  13. CEFPODOXIME 200 MG DAILY [Concomitant]
     Dates: start: 20201120, end: 20201124

REACTIONS (5)
  - Hepatic cirrhosis [None]
  - Fluid overload [None]
  - Asthenia [None]
  - Pain in extremity [None]
  - Peripheral swelling [None]

NARRATIVE: CASE EVENT DATE: 20201118
